FAERS Safety Report 6786784-6 (Version None)
Quarter: 2010Q2

REPORT INFORMATION
  Report Type: 
  Country: None (occurrence: None)
  Receive Date: 20100623
  Receipt Date: 20100611
  Transmission Date: 20101027
  Serious: Yes (Other)
  Sender: FDA-Public Use
  Company Number: US-JNJCH-2010012567

PATIENT
  Sex: Male

DRUGS (1)
  1. CHILDREN'S ZYRTEC ALLERGY [Suspect]
     Indication: HYPERSENSITIVITY
     Dosage: TEXT:TWO TEASPOONFULS ONCE
     Route: 048
     Dates: start: 20100405, end: 20100405

REACTIONS (3)
  - HALLUCINATION [None]
  - PRODUCT QUALITY ISSUE [None]
  - PYREXIA [None]
